FAERS Safety Report 8085998-5 (Version None)
Quarter: 2012Q1

REPORT INFORMATION
  Report Type: 
  Country: None (occurrence: None)
  Receive Date: 20120128
  Receipt Date: 20110609
  Transmission Date: 20120608
  Serious: No
  Sender: FDA-Public Use
  Company Number: US-ABBOTT-11P-163-0731395-00

PATIENT
  Age: 31 Year
  Sex: Female

DRUGS (14)
  1. TRAZODONE HCL [Concomitant]
     Indication: INSOMNIA
     Dosage: AT BEDTIME
  2. HYDROCODONE BITARTRATE [Concomitant]
     Indication: PAIN
     Dosage: 10-325MG UP TO 6 TABLETS, DAILY
  3. FOLIC ACID [Concomitant]
     Indication: PRODUCT USED FOR UNKNOWN INDICATION
  4. PLAQUENIL [Concomitant]
     Indication: RHEUMATOID ARTHRITIS
  5. CALTRATE WITH VITAMIN D [Concomitant]
     Indication: PRODUCT USED FOR UNKNOWN INDICATION
  6. HUMIRA [Suspect]
     Indication: RHEUMATOID ARTHRITIS
     Dates: start: 20110508
  7. SULFASALAZINE [Concomitant]
     Indication: RHEUMATOID ARTHRITIS
  8. TRAMADOL HCL [Concomitant]
     Indication: PAIN
     Dosage: UP TO 6 TABLETS, DAILY
  9. INDOMETHACIN [Concomitant]
     Indication: RHEUMATOID ARTHRITIS
  10. VITAMIN B-12 [Concomitant]
     Indication: PRODUCT USED FOR UNKNOWN INDICATION
  11. FLEXERIL [Concomitant]
     Indication: INSOMNIA
     Dosage: AT BEDTIME
  12. CYMBALTA [Concomitant]
     Indication: DEPRESSION
  13. VIT D2 [Concomitant]
     Indication: PRODUCT USED FOR UNKNOWN INDICATION
  14. FENTANYL [Concomitant]
     Indication: PRODUCT USED FOR UNKNOWN INDICATION
     Dosage: PATCH, 1 EVERY 2 DAYS

REACTIONS (1)
  - INJECTION SITE PAIN [None]
